FAERS Safety Report 8209562-X (Version None)
Quarter: 2012Q1

REPORT INFORMATION
  Report Type: 
  Country: None (occurrence: None)
  Receive Date: 20120314
  Receipt Date: 20120308
  Transmission Date: 20120608
  Serious: Yes (Hospitalization, Other)
  Sender: FDA-Public Use
  Company Number: PHHO2012FR001258

PATIENT
  Sex: Male
  Weight: 70 kg

DRUGS (15)
  1. BLINDED NO TREATMENT RECEIVED [Suspect]
     Indication: HEPATIC NEOPLASM MALIGNANT
     Dosage: CODE NOT BROKEN
     Dates: start: 20111119, end: 20111201
  2. PLACEBO [Suspect]
     Indication: HEPATIC NEOPLASM MALIGNANT
     Dosage: CODE NOT BROKEN
     Dates: start: 20111119, end: 20111201
  3. ZOMETA [Suspect]
     Indication: METASTATIC PAIN
     Dosage: 4 MG, PRN
     Route: 042
     Dates: start: 20111209, end: 20111209
  4. ENTECAVIR [Concomitant]
     Indication: HEPATITIS B
     Dosage: 0.5 MG EVERY 72 HOURS
     Route: 048
     Dates: start: 20110905, end: 20111230
  5. AFINITOR [Suspect]
     Dosage: CODE NOT BROKEN
     Dates: start: 20111202, end: 20111230
  6. DIAMICRON [Concomitant]
     Indication: DIABETES MELLITUS
     Dosage: 12 MG, QID
     Route: 048
     Dates: start: 19960101, end: 20111230
  7. SIMVASTATIN [Concomitant]
     Indication: HYPERCHOLESTEROLAEMIA
     Dosage: 40 MG, QID
     Route: 048
     Dates: start: 20060101, end: 20111230
  8. CLOPIDOGREL [Concomitant]
     Indication: ANTICOAGULANT THERAPY
     Dosage: 75 MG, QID
     Route: 048
     Dates: start: 20100301
  9. LANTUS [Concomitant]
     Indication: DIABETES MELLITUS
     Dosage: 12 U QID
     Route: 058
     Dates: start: 20111017, end: 20111230
  10. PLACEBO [Suspect]
     Dosage: CODE NOT BROKEN
     Dates: start: 20111202, end: 20111230
  11. CANDESARTAN CILEXETIL [Concomitant]
     Indication: HYPERTENSION
     Dosage: 15 MG, QID
     Route: 048
     Dates: start: 20110101, end: 20111230
  12. AFINITOR [Suspect]
     Indication: HEPATIC NEOPLASM MALIGNANT
     Dosage: CODE NOT BROKEN
     Dates: start: 20111119, end: 20111201
  13. BLINDED NO TREATMENT RECEIVED [Suspect]
     Dosage: CODE NOT BROKEN
     Dates: start: 20111202, end: 20111230
  14. SIMVASTATIN [Concomitant]
     Indication: TYPE 2 DIABETES MELLITUS
  15. JANUVIA [Concomitant]
     Indication: TYPE 2 DIABETES MELLITUS
     Dosage: 100 MG, QID
     Route: 048
     Dates: start: 20110801, end: 20111230

REACTIONS (5)
  - GASTROENTERITIS [None]
  - RENAL FAILURE ACUTE [None]
  - PULMONARY OEDEMA [None]
  - DYSPNOEA [None]
  - SEPTIC SHOCK [None]
